FAERS Safety Report 17125013 (Version 1)
Quarter: 2019Q4

REPORT INFORMATION
  Report Type: Spontaneous
  Country: FR (occurrence: FR)
  Receive Date: 20191206
  Receipt Date: 20191206
  Transmission Date: 20200122
  Serious: Yes (Other)
  Sender: FDA-Public Use
  Company Number: FR-PFIZER INC-2019523419

PATIENT
  Age: 30 Year
  Sex: Female
  Weight: 57 kg

DRUGS (1)
  1. VINCRISTINE HOSPIRA [Suspect]
     Active Substance: VINCRISTINE
     Indication: GLIOMA
     Dosage: 1 MG/ML, SINGLE
     Route: 041
     Dates: start: 20190729, end: 20190729

REACTIONS (6)
  - Drug monitoring procedure incorrectly performed [Recovered/Resolved]
  - Infusion site oedema [Recovering/Resolving]
  - Infusion site atrophy [Recovering/Resolving]
  - Infusion site extravasation [Recovering/Resolving]
  - Infusion site erythema [Recovering/Resolving]
  - Infusion site pain [Recovering/Resolving]

NARRATIVE: CASE EVENT DATE: 20190729
